FAERS Safety Report 7472467-6 (Version None)
Quarter: 2011Q2

REPORT INFORMATION
  Report Type: 
  Country: None (occurrence: None)
  Receive Date: 20110511
  Receipt Date: 20110429
  Transmission Date: 20111010
  Serious: Yes (Hospitalization)
  Sender: FDA-Public Use
  Company Number: PHHY2011BR36884

PATIENT
  Sex: Female

DRUGS (2)
  1. METICORTEN [Concomitant]
  2. STALEVO 100 [Suspect]
     Indication: PARKINSON'S DISEASE
     Dosage: 1 DF, HALF TABLET ON MORNING AND HALF ON AFTERNOON
     Route: 048

REACTIONS (6)
  - HERPES VIRUS INFECTION [None]
  - VOMITING [None]
  - MALAISE [None]
  - ANGINA PECTORIS [None]
  - BLOOD PRESSURE INCREASED [None]
  - CHEST PAIN [None]
